FAERS Safety Report 6793523-1 (Version None)
Quarter: 2010Q2

REPORT INFORMATION
  Report Type: 
  Country: None (occurrence: None)
  Receive Date: 20100624
  Receipt Date: 20100429
  Transmission Date: 20101027
  Serious: Yes (Death)
  Sender: FDA-Public Use
  Company Number: US-MYLANLABS-2010S1007685

PATIENT
  Sex: Male

DRUGS (6)
  1. CLOZAPINE [Suspect]
     Route: 048
  2. SINEMET [Concomitant]
  3. FLUDROCORTISONE [Concomitant]
  4. AMANTADINE HCL [Concomitant]
  5. PROZAC [Concomitant]
  6. NEURONTIN [Concomitant]

REACTIONS (1)
  - DEATH [None]
